FAERS Safety Report 6647931-X (Version None)
Quarter: 2010Q1

REPORT INFORMATION
  Report Type: 
  Country: None (occurrence: None)
  Receive Date: 20100318
  Receipt Date: 20100312
  Transmission Date: 20100710
  Serious: Yes (Hospitalization, Other)
  Sender: FDA-Public Use
  Company Number: 2010SP013059

PATIENT
  Age: 78 Year
  Sex: Male

DRUGS (3)
  1. DESLORATADINE [Suspect]
     Indication: DRUG USE FOR UNKNOWN INDICATION
     Dosage: 5 MG;QPM;PO
     Route: 048
     Dates: start: 20091211, end: 20091212
  2. BISOPROLOL FUMARATE [Concomitant]
  3. LANSOPRAZOLE [Concomitant]

REACTIONS (5)
  - ACUTE PULMONARY OEDEMA [None]
  - HEART RATE INCREASED [None]
  - HYPERTENSION [None]
  - INFLAMMATION [None]
  - PNEUMONIA [None]
